FAERS Safety Report 4632636-7 (Version None)
Quarter: 2005Q2

REPORT INFORMATION
  Report Type: 
  Country: None (occurrence: None)
  Receive Date: 20050331
  Receipt Date: 20040825
  Transmission Date: 20051028
  Serious: Yes (Other)
  Sender: FDA-Public Use
  Company Number: 200414187BCC

PATIENT
  Age: 89 Year
  Sex: Female
  Weight: 49.8957 kg

DRUGS (10)
  1. ALEVE (CAPLET) [Suspect]
     Indication: ARTHRALGIA
     Dosage: 220 MG, BID, ORAL; FEW YEARS
     Route: 048
  2. DIOVAN [Concomitant]
  3. TOPROL-XL [Concomitant]
  4. DARVOCET-N 100 [Concomitant]
  5. LANOXIN [Concomitant]
  6. DIABETA [Concomitant]
  7. BUSPAR [Concomitant]
  8. ISOSORBIDE [Concomitant]
  9. DYNACIRC [Concomitant]
  10. ASPIRIN [Concomitant]

REACTIONS (6)
  - ABDOMINAL PAIN [None]
  - DRY MOUTH [None]
  - DYSPEPSIA [None]
  - GASTRIC ULCER [None]
  - HAEMOGLOBIN DECREASED [None]
  - LACRIMATION INCREASED [None]
